FAERS Safety Report 4843931-0 (Version None)
Quarter: 2005Q4

REPORT INFORMATION
  Report Type: 
  Country: None (occurrence: None)
  Receive Date: 20051202
  Receipt Date: 20050608
  Transmission Date: 20060501
  Serious: No
  Sender: FDA-Public Use
  Company Number: US-GLAXOSMITHKLINE-A0562501A

PATIENT
  Age: 27 Year
  Sex: Female

DRUGS (2)
  1. AUGMENTIN XR [Suspect]
     Indication: INFECTION
     Route: 048
     Dates: start: 20050524, end: 20050604
  2. BIRTH CONTROL PILL [Concomitant]
     Route: 048

REACTIONS (1)
  - URTICARIA [None]
